FAERS Safety Report 21087991 (Version 1)
Quarter: 2022Q3

REPORT INFORMATION
  Report Type: Spontaneous
  Country: US (occurrence: US)
  Receive Date: 20220715
  Receipt Date: 20220715
  Transmission Date: 20221027
  Serious: Yes (Hospitalization)
  Sender: FDA-Public Use
  Company Number: US-Vifor (International) Inc.-VIT-2022-04933

PATIENT
  Age: 73 Year
  Sex: Female
  Weight: 132.6 kg

DRUGS (4)
  1. MIRCERA [Suspect]
     Active Substance: METHOXY POLYETHYLENE GLYCOL-EPOETIN BETA
     Indication: Nephrogenic anaemia
     Dosage: 3 DOSES
     Route: 042
     Dates: start: 2017
  2. MIRCERA [Suspect]
     Active Substance: METHOXY POLYETHYLENE GLYCOL-EPOETIN BETA
     Indication: Chronic kidney disease
     Route: 042
     Dates: start: 20220627, end: 20220627
  3. VENOFER [Suspect]
     Active Substance: IRON SUCROSE
     Indication: Product used for unknown indication
     Route: 042
  4. VENOFER [Suspect]
     Active Substance: IRON SUCROSE
     Route: 042
     Dates: start: 20220627

REACTIONS (5)
  - Drug hypersensitivity [Unknown]
  - Dyspnoea [Unknown]
  - Pruritus [Unknown]
  - Hyperhidrosis [Unknown]
  - Flushing [Unknown]

NARRATIVE: CASE EVENT DATE: 20220627
